FAERS Safety Report 11135656 (Version 1)
Quarter: 2015Q2

REPORT INFORMATION
  Report Type: Spontaneous
  Country: GB (occurrence: GB)
  Receive Date: 20150526
  Receipt Date: 20150526
  Transmission Date: 20150821
  Serious: Yes (Hospitalization)
  Sender: FDA-Public Use
  Company Number: GB-TEVA-563868ACC

PATIENT
  Age: 64 Year
  Sex: Male

DRUGS (8)
  1. LANTUS [Concomitant]
     Active Substance: INSULIN GLARGINE
     Route: 058
  2. XELODA [Suspect]
     Active Substance: CAPECITABINE
     Indication: ADENOCARCINOMA GASTRIC
     Dosage: 2600 MG CYCLICAL, LAST DOSE PRIOR TO SAE: 06APR2010. TREATMENT DELAYED
     Route: 048
  3. METFORMIN [Concomitant]
     Active Substance: METFORMIN HYDROCHLORIDE
     Route: 048
  4. LIPANTIL [Concomitant]
     Active Substance: FENOFIBRATE
     Route: 048
  5. AVASTIN [Suspect]
     Active Substance: BEVACIZUMAB
     Indication: ADENOCARCINOMA GASTRIC
     Dosage: 800 MG CYCLICAL, LAST DOSE PRIOR TO SAE: 30MAR2010
     Route: 042
  6. RAPITARD MC [Concomitant]
     Route: 058
  7. CISPLATIN. [Suspect]
     Active Substance: CISPLATIN
     Indication: ADENOCARCINOMA GASTRIC
     Dosage: 120 MG CYCLICAL, LAST DOSE PRIOR TO SAE: 30MAR2010
     Route: 042
     Dates: start: 20100330
  8. EPIRUBICIN [Suspect]
     Active Substance: EPIRUBICIN
     Indication: ADENOCARCINOMA GASTRIC
     Dosage: 100 MG CYCLICAL, LAST DOSE PRIOR TO SAE: 30MAR2010
     Route: 042
     Dates: start: 20100330

REACTIONS (2)
  - Dehydration [Not Recovered/Not Resolved]
  - Feeding disorder [Unknown]

NARRATIVE: CASE EVENT DATE: 20100331
